FAERS Safety Report 9130244 (Version 2)
Quarter: 2013Q1

REPORT INFORMATION
  Report Type: Report from Study
  Country: CA (occurrence: CA)
  Receive Date: 20130228
  Receipt Date: 20130318
  Transmission Date: 20140127
  Serious: Yes (Death, Life-Threatening, Hospitalization)
  Sender: FDA-Public Use
  Company Number: CA-BRISTOL-MYERS SQUIBB COMPANY-17375593

PATIENT
  Age: 63 Year
  Sex: Female

DRUGS (12)
  1. ORENCIA [Suspect]
     Indication: RHEUMATOID ARTHRITIS
     Dosage: 1 DF = 750 UNITS NOS?LAST DOSE: 08JAN2013
     Dates: start: 20110727, end: 20130108
  2. AMLODIPINE [Concomitant]
  3. ATACAND [Concomitant]
  4. RABEPRAZOLE [Concomitant]
  5. CRESTOR [Concomitant]
  6. NABUMETONE [Concomitant]
  7. CODEINE [Concomitant]
  8. HYDROXYZINE [Concomitant]
  9. ATROVENT [Concomitant]
  10. SPIRIVA [Concomitant]
  11. ZOPICLONE [Concomitant]
  12. HYDROCHLOROTHIAZIDE [Concomitant]

REACTIONS (5)
  - Death [Fatal]
  - Renal failure [Unknown]
  - Coma [Unknown]
  - Adenocarcinoma [Not Recovered/Not Resolved]
  - Gastrointestinal disorder [Unknown]
